FAERS Safety Report 5067618-7 (Version None)
Quarter: 2006Q3

REPORT INFORMATION
  Report Type: 
  Country: None (occurrence: None)
  Receive Date: 20060727
  Receipt Date: 20060718
  Transmission Date: 20061208
  Serious: Yes (Hospitalization, Disabling)
  Sender: FDA-Public Use
  Company Number: GBWYE976014SEP05

PATIENT
  Age: 52 Year
  Sex: Female

DRUGS (6)
  1. EFFEXOR XR [Suspect]
     Indication: DEPRESSION
     Dosage: 375 MG 1X PER 1 DAY ORAL
     Route: 048
     Dates: start: 19990501, end: 20060701
  2. DEPAKOTE [Concomitant]
  3. BUSPIRONE HCL [Concomitant]
  4. CHLORPROMAZINE (CHLORPRMAZINE) [Concomitant]
  5. ZOPICLONE (ZOPICLONE) [Concomitant]
  6. ETHINYLOESTRADIOL (ETHINYLESTRADIOL) [Concomitant]

REACTIONS (5)
  - ANXIETY [None]
  - CONDITION AGGRAVATED [None]
  - DEPRESSED MOOD [None]
  - MICTURITION URGENCY [None]
  - POLLAKIURIA [None]
